FAERS Safety Report 8272699-3 (Version None)
Quarter: 2012Q2

REPORT INFORMATION
  Report Type: 
  Country: None (occurrence: None)
  Receive Date: 20120411
  Receipt Date: 20120330
  Transmission Date: 20120825
  Serious: Yes (Hospitalization)
  Sender: FDA-Public Use
  Company Number: IT-BAXTER-2012BAX000416

PATIENT
  Sex: Female
  Weight: 69 kg

DRUGS (4)
  1. NAVELBINE [Suspect]
     Route: 065
     Dates: start: 20120222, end: 20120307
  2. KEPPRA [Concomitant]
     Route: 048
     Dates: end: 20120307
  3. AMOXICILLIN [Concomitant]
     Indication: PAIN
     Route: 065
     Dates: start: 20120229, end: 20120307
  4. HYDROCORTISON                      /00028601/ [Concomitant]
     Route: 065
     Dates: start: 20120307, end: 20120307

REACTIONS (2)
  - SEPSIS [None]
  - CONVULSION [None]
